FAERS Safety Report 4317613-8 (Version None)
Quarter: 2004Q1

REPORT INFORMATION
  Report Type: 
  Country: None (occurrence: None)
  Receive Date: 20040315
  Receipt Date: 20040309
  Transmission Date: 20041129
  Serious: Yes (Life-Threatening)
  Sender: FDA-Public Use
  Company Number: US-BRISTOL-MYERS SQUIBB COMPANY-12528477

PATIENT
  Age: 29 Year
  Sex: Male
  Weight: 70 kg

DRUGS (4)
  1. SUSTIVA [Suspect]
     Indication: HIV INFECTION
     Dosage: MOST RECENT DOSE PRIOR TO EVENT 10-DEC-2003.
     Route: 048
     Dates: start: 20030822
  2. KALETRA [Suspect]
     Indication: HIV INFECTION
     Dosage: DOSE 533/133. MOST RECENT DOSE PRIOR TO EVENT 10-DEC-2003.
     Route: 048
     Dates: start: 20030822
  3. DAPSONE [Concomitant]
  4. AZITHROMYCIN [Concomitant]

REACTIONS (1)
  - BLOOD CREATINE PHOSPHOKINASE INCREASED [None]
